FAERS Safety Report 5785798-2 (Version None)
Quarter: 2008Q2

REPORT INFORMATION
  Report Type: 
  Country: None (occurrence: None)
  Receive Date: 20080619
  Receipt Date: 20080609
  Transmission Date: 20081010
  Serious: Yes (Hospitalization)
  Sender: FDA-Public Use
  Company Number: 2008SP011301

PATIENT
  Age: 58 Year
  Sex: Male

DRUGS (25)
  1. CELESTONE [Suspect]
     Indication: CHILLS
     Dosage: 2 MG;QD;PO
     Route: 048
     Dates: start: 20080404, end: 20080408
  2. CELESTONE [Suspect]
     Indication: COUGH
     Dosage: 2 MG;QD;PO
     Route: 048
     Dates: start: 20080404, end: 20080408
  3. CELESTONE [Suspect]
     Indication: PHARYNGITIS
     Dosage: 2 MG;QD;PO
     Route: 048
     Dates: start: 20080404, end: 20080408
  4. CELESTONE [Suspect]
     Indication: PYREXIA
     Dosage: 2 MG;QD;PO
     Route: 048
     Dates: start: 20080404, end: 20080408
  5. CELESTONE [Suspect]
     Indication: RHINITIS
     Dosage: 2 MG;QD;PO
     Route: 048
     Dates: start: 20080404, end: 20080408
  6. CELESTONE [Suspect]
     Indication: TRACHEITIS
     Dosage: 2 MG;QD;PO
     Route: 048
     Dates: start: 20080404, end: 20080408
  7. CEFUROXIME [Suspect]
     Indication: CHILLS
     Dosage: 250 MG;BID;PO
     Route: 048
     Dates: start: 20080404, end: 20080405
  8. CEFUROXIME [Suspect]
     Indication: COUGH
     Dosage: 250 MG;BID;PO
     Route: 048
     Dates: start: 20080404, end: 20080405
  9. CEFUROXIME [Suspect]
     Indication: PHARYNGITIS
     Dosage: 250 MG;BID;PO
     Route: 048
     Dates: start: 20080404, end: 20080405
  10. CEFUROXIME [Suspect]
     Indication: PYREXIA
     Dosage: 250 MG;BID;PO
     Route: 048
     Dates: start: 20080404, end: 20080405
  11. CEFUROXIME [Suspect]
     Indication: RHINITIS
     Dosage: 250 MG;BID;PO
     Route: 048
     Dates: start: 20080404, end: 20080405
  12. CEFUROXIME [Suspect]
     Indication: TRACHEITIS
     Dosage: 250 MG;BID;PO
     Route: 048
     Dates: start: 20080404, end: 20080405
  13. DERINOX (NO PREF. NAME) [Suspect]
     Indication: CHILLS
     Dosage: NAS
     Route: 045
     Dates: start: 20080404, end: 20080408
  14. DERINOX (NO PREF. NAME) [Suspect]
     Indication: COUGH
     Dosage: NAS
     Route: 045
     Dates: start: 20080404, end: 20080408
  15. DERINOX (NO PREF. NAME) [Suspect]
     Indication: PHARYNGITIS
     Dosage: NAS
     Route: 045
     Dates: start: 20080404, end: 20080408
  16. DERINOX (NO PREF. NAME) [Suspect]
     Indication: PYREXIA
     Dosage: NAS
     Route: 045
     Dates: start: 20080404, end: 20080408
  17. DERINOX (NO PREF. NAME) [Suspect]
     Indication: RHINITIS
     Dosage: NAS
     Route: 045
     Dates: start: 20080404, end: 20080408
  18. DERINOX (NO PREF. NAME) [Suspect]
     Indication: TRACHEITIS
     Dosage: NAS
     Route: 045
     Dates: start: 20080404, end: 20080408
  19. POLERY (NO PREF. NAME) [Suspect]
     Indication: CHILLS
     Dosage: PO
     Route: 048
     Dates: start: 20080404, end: 20080408
  20. POLERY (NO PREF. NAME) [Suspect]
     Indication: COUGH
     Dosage: PO
     Route: 048
     Dates: start: 20080404, end: 20080408
  21. POLERY (NO PREF. NAME) [Suspect]
     Indication: PHARYNGITIS
     Dosage: PO
     Route: 048
     Dates: start: 20080404, end: 20080408
  22. POLERY (NO PREF. NAME) [Suspect]
     Indication: PYREXIA
     Dosage: PO
     Route: 048
     Dates: start: 20080404, end: 20080408
  23. POLERY (NO PREF. NAME) [Suspect]
     Indication: RHINITIS
     Dosage: PO
     Route: 048
     Dates: start: 20080404, end: 20080408
  24. POLERY (NO PREF. NAME) [Suspect]
     Indication: TRACHEITIS
     Dosage: PO
     Route: 048
     Dates: start: 20080404, end: 20080408
  25. ORELOX [Concomitant]

REACTIONS (9)
  - ABDOMINAL PAIN UPPER [None]
  - ASTHENIA [None]
  - CHROMATURIA [None]
  - CREATININE RENAL CLEARANCE DECREASED [None]
  - LABORATORY TEST ABNORMAL [None]
  - MUSCLE SPASMS [None]
  - NAUSEA [None]
  - NIGHT SWEATS [None]
  - THROMBOTIC MICROANGIOPATHY [None]
